FAERS Safety Report 24055969 (Version 1)
Quarter: 2024Q3

REPORT INFORMATION
  Report Type: Spontaneous
  Country: ES (occurrence: ES)
  Receive Date: 20240705
  Receipt Date: 20240705
  Transmission Date: 20241017
  Serious: Yes (Death, Other)
  Sender: GILEAD
  Company Number: ES-GILEAD-2024-0679556

PATIENT

DRUGS (7)
  1. YESCARTA [Suspect]
     Active Substance: AXICABTAGENE CILOLEUCEL
     Indication: Product used for unknown indication
     Dosage: UNK
     Route: 042
     Dates: start: 20221221, end: 20221221
  2. RITUXIMAB [Concomitant]
     Active Substance: RITUXIMAB
  3. POLATUZUMAB VEDOTIN [Concomitant]
     Active Substance: POLATUZUMAB VEDOTIN
  4. BENDAMUSTINE [Concomitant]
     Active Substance: BENDAMUSTINE
  5. TAFASITAMAB [Concomitant]
     Active Substance: TAFASITAMAB
  6. LENALIDOMIDE [Concomitant]
     Active Substance: LENALIDOMIDE
  7. EPCORITAMAB [Concomitant]
     Active Substance: EPCORITAMAB

REACTIONS (2)
  - Death [Fatal]
  - Disease progression [Unknown]

NARRATIVE: CASE EVENT DATE: 20240106
